FAERS Safety Report 9861096 (Version 1)
Quarter: 2014Q1

REPORT INFORMATION
  Report Type: Spontaneous
  Country: AU (occurrence: AU)
  Receive Date: 20140202
  Receipt Date: 20140202
  Transmission Date: 20141002
  Serious: No
  Sender: FDA-Public Use
  Company Number: AU-ALLERGAN-1303508US

PATIENT
  Age: 34 Year
  Sex: Female

DRUGS (1)
  1. BOTOX [Suspect]
     Indication: SKIN WRINKLING
     Dosage: UNK
     Dates: start: 201302, end: 201302

REACTIONS (3)
  - Influenza like illness [Not Recovered/Not Resolved]
  - Contusion [Recovered/Resolved]
  - Swelling [Recovered/Resolved]
